FAERS Safety Report 13836203 (Version 2)
Quarter: 2017Q3

REPORT INFORMATION
  Report Type: Report from Study
  Country: JP (occurrence: JP)
  Receive Date: 20170804
  Receipt Date: 20170817
  Transmission Date: 20171127
  Serious: Yes (Congenital Anomaly)
  Sender: FDA-Public Use
  Company Number: JP-BAYER-2017-148968

PATIENT
  Age: 58 Year
  Sex: Male

DRUGS (17)
  1. PARIET [Concomitant]
     Active Substance: RABEPRAZOLE SODIUM
     Indication: PROSTATE CANCER
     Dosage: 10 MG, QD
     Route: 048
  2. URSODEOXYCHOLIC ACID [Concomitant]
     Active Substance: URSODIOL
     Indication: PROSTATE CANCER
     Dosage: DAILY DOSE 300 MG
     Route: 048
  3. LOPERAMIDE [Concomitant]
     Active Substance: LOPERAMIDE
     Indication: PROSTATE CANCER
     Dosage: UNK UNK, PRN
     Dates: start: 20170126, end: 20170212
  4. XOFIGO [Suspect]
     Active Substance: RADIUM RA-223 DICHLORIDE
     Indication: PROSTATE CANCER METASTATIC
     Dosage: 55 KBQ, ONCE
     Route: 042
     Dates: start: 20160921
  5. LOXOPROFEN SODIUM [Concomitant]
     Active Substance: LOXOPROFEN SODIUM
     Indication: PROSTATE CANCER
     Dosage: DAILY DOSE 120 MG
     Route: 048
  6. DECADRON [Concomitant]
     Active Substance: DEXAMETHASONE
     Indication: PROSTATE CANCER
     Dosage: DAILY DOSE 1 MG
     Route: 048
  7. OXYCONTIN [Concomitant]
     Active Substance: OXYCODONE HYDROCHLORIDE
     Indication: PROSTATE CANCER
     Dosage: DAILY DOSE 5 MG
     Route: 048
     Dates: start: 20161122
  8. XOFIGO [Suspect]
     Active Substance: RADIUM RA-223 DICHLORIDE
     Indication: PROSTATE CANCER METASTATIC
     Dosage: 55 KBQ, ONCE
     Route: 042
     Dates: start: 20170124
  9. LYRICA [Concomitant]
     Active Substance: PREGABALIN
     Indication: PROSTATE CANCER
     Dosage: DAILY DOSE 50 MG
     Route: 048
     Dates: start: 20170120
  10. XOFIGO [Suspect]
     Active Substance: RADIUM RA-223 DICHLORIDE
     Indication: PROSTATE CANCER METASTATIC
     Dosage: 55 KBQ, ONCE
     Route: 042
     Dates: start: 20161122
  11. SENNOSIDE [Concomitant]
     Active Substance: SENNOSIDES
     Indication: PROSTATE CANCER
     Dosage: DAILY DOSE 24 MG
     Route: 048
     Dates: start: 20170601
  12. XOFIGO [Suspect]
     Active Substance: RADIUM RA-223 DICHLORIDE
     Indication: PROSTATE CANCER METASTATIC
     Dosage: 55 KBQ, ONCE
     Route: 042
     Dates: start: 20161025
  13. XOFIGO [Suspect]
     Active Substance: RADIUM RA-223 DICHLORIDE
     Indication: PROSTATE CANCER METASTATIC
     Dosage: 55 KBQ, ONCE
     Route: 042
     Dates: start: 20161220
  14. PROSEXOL [Concomitant]
     Active Substance: ETHINYL ESTRADIOL
     Indication: PROSTATE CANCER
     Dosage: DAILY DOSE 1 MG
     Route: 048
  15. GOODMIN [Concomitant]
     Active Substance: BROTIZOLAM
     Indication: PROSTATE CANCER
     Dosage: DAILY DOSE .25 MG
     Route: 048
     Dates: start: 20161018
  16. BAYASPIRIN 100 MG [Concomitant]
     Active Substance: ASPIRIN
     Indication: PROSTATE CANCER
     Dosage: DAILY DOSE 100 MG
     Route: 048
  17. OXINORM [ORGOTEIN] [Concomitant]
     Indication: PROSTATE CANCER
     Dosage: DAILY DOSE 5 MG
     Route: 048
     Dates: start: 20161018

REACTIONS (3)
  - Bone pain [Recovered/Resolved with Sequelae]
  - Diarrhoea [Recovering/Resolving]
  - Diarrhoea [Recovered/Resolved]
